FAERS Safety Report 4442721-0 (Version None)
Quarter: 2004Q3

REPORT INFORMATION
  Report Type: 
  Country: None (occurrence: None)
  Receive Date: 20040903
  Receipt Date: 20040518
  Transmission Date: 20050211
  Serious: Yes (Other)
  Sender: FDA-Public Use
  Company Number: 2004UW10432

PATIENT
  Age: 56 Year
  Sex: Female
  Weight: 90.7194 kg

DRUGS (11)
  1. CRESTOR [Suspect]
     Indication: HYPERCHOLESTEROLAEMIA
     Dosage: 10 MG PO
     Route: 048
     Dates: start: 20040201
  2. COZAAR [Concomitant]
  3. ATENOLOL [Concomitant]
  4. NEXIUM [Concomitant]
  5. NO MATCH [Concomitant]
  6. ZYRTEC [Concomitant]
  7. LASIX [Concomitant]
  8. POTASSIUM [Concomitant]
  9. MULTIVITAMIN [Concomitant]
  10. FISH OIL [Concomitant]
  11. ASPIRIN [Concomitant]

REACTIONS (4)
  - ASTHENIA [None]
  - MUSCLE STRAIN [None]
  - MUSCLE TIGHTNESS [None]
  - TENDON INJURY [None]
